FAERS Safety Report 9963908 (Version 1)
Quarter: 2014Q1

REPORT INFORMATION
  Report Type: Spontaneous
  Country: FR (occurrence: FR)
  Receive Date: 20140305
  Receipt Date: 20140305
  Transmission Date: 20141002
  Serious: Yes (Hospitalization)
  Sender: FDA-Public Use
  Company Number: PHHY2014FR025945

PATIENT
  Age: 42 Year
  Sex: Male

DRUGS (6)
  1. PREDNISOLONE SANDOZ [Suspect]
     Indication: BACK PAIN
     Route: 048
     Dates: start: 20130226, end: 20130305
  2. DAFALGAN CODEINE [Concomitant]
     Indication: BACK PAIN
     Dosage: 6 DF, QD
     Route: 048
     Dates: start: 20130226, end: 20130305
  3. TETRAZEPAM [Concomitant]
     Indication: BACK PAIN
     Dosage: 50 MG, QD
     Route: 048
     Dates: start: 20130226, end: 20130305
  4. DERINOX [Concomitant]
     Indication: NASOPHARYNGITIS
     Dosage: 6 DF, QD
     Route: 045
     Dates: start: 20130226, end: 20130302
  5. TUSSIDANE [Concomitant]
     Indication: NASOPHARYNGITIS
     Dosage: 4 DF, QD
     Route: 048
     Dates: start: 20130226, end: 20130302
  6. TERALITHE [Concomitant]
     Indication: BIPOLAR DISORDER
     Dosage: 400 MG, QD
     Route: 065

REACTIONS (3)
  - Abnormal behaviour [Recovered/Resolved]
  - Agitation [Recovered/Resolved]
  - Mania [Recovered/Resolved]
